FAERS Safety Report 15827307 (Version 2)
Quarter: 2019Q1

REPORT INFORMATION
  Report Type: Spontaneous
  Country: DE (occurrence: DE)
  Receive Date: 20190115
  Receipt Date: 20190206
  Transmission Date: 20190417
  Serious: Yes (Other)
  Sender: FDA-Public Use
  Company Number: DE-MYLANLABS-2019M1002765

PATIENT
  Age: 32 Year
  Sex: Female

DRUGS (5)
  1. PROMETHAZINE [Interacting]
     Active Substance: PROMETHAZINE\PROMETHAZINE HYDROCHLORIDE
     Indication: PRODUCT USED FOR UNKNOWN INDICATION
     Dosage: 150 MILLIGRAM, QD, (DOSAGE FORM: UNSPECIFIED)
     Route: 048
     Dates: start: 20170822, end: 20170915
  2. RISPERIDONE. [Suspect]
     Active Substance: RISPERIDONE
     Indication: MAJOR DEPRESSION
     Dosage: 2.5 MILLIGRAM, QD, (DOSAGE FORM: UNSPECIFIED)
     Route: 048
     Dates: start: 20170808, end: 20170911
  3. MIRTAZAPIN [Concomitant]
     Active Substance: MIRTAZAPINE
     Dosage: 45 MILLIGRAM, QD, (DOSAGE FORM: UNSPECIFIED)
     Route: 048
     Dates: start: 20170801
  4. SERTRALINE [Concomitant]
     Active Substance: SERTRALINE HYDROCHLORIDE
     Dosage: 50 MILLIGRAM, QD, (DOSAGE FORM: UNSPECIFIED)
     Route: 048
     Dates: start: 20170907, end: 20170912
  5. LEVOTHYROXIN [Concomitant]
     Active Substance: LEVOTHYROXINE
     Dosage: 75 MICROGRAM, QD, (DOSAGE FORM: UNSPECIFIED)
     Route: 048
     Dates: start: 2014

REACTIONS (5)
  - Galactorrhoea [Recovering/Resolving]
  - Product use in unapproved indication [Unknown]
  - Blood prolactin increased [Recovered/Resolved]
  - Drug interaction [Unknown]
  - Off label use [Unknown]

NARRATIVE: CASE EVENT DATE: 20170808
